FAERS Safety Report 9543177 (Version 1)
Quarter: 2013Q2

REPORT INFORMATION
  Report Type: Spontaneous
  Country: US (occurrence: None)
  Receive Date: 20130524
  Receipt Date: 20130524
  Transmission Date: 20140414
  Serious: No
  Sender: FDA-Public Use
  Company Number: PHEH2013US002982

PATIENT
  Age: 35 Year
  Sex: Female

DRUGS (1)
  1. GILENYA (FINGOLIMOD) CAPSULE [Suspect]

REACTIONS (3)
  - Balance disorder [None]
  - Vertigo [None]
  - Pain in extremity [None]
